FAERS Safety Report 6168931-2 (Version None)
Quarter: 2009Q2

REPORT INFORMATION
  Report Type: 
  Country: None (occurrence: None)
  Receive Date: 20090427
  Receipt Date: 20090416
  Transmission Date: 20091009
  Serious: Yes (Hospitalization)
  Sender: FDA-Public Use
  Company Number: PHHY2009JP14525

PATIENT
  Age: 28 Day
  Sex: Male

DRUGS (2)
  1. OCTREOTIDE ACETATE [Suspect]
     Dosage: 10 UG/KG PER HOUR
  2. PICIBANIL [Suspect]

REACTIONS (7)
  - C-REACTIVE PROTEIN INCREASED [None]
  - CHYLOTHORAX [None]
  - DRUG INEFFECTIVE [None]
  - PLEURAL DISORDER [None]
  - PYREXIA [None]
  - TACHYPNOEA [None]
  - THORACIC CAVITY DRAINAGE [None]
